FAERS Safety Report 5050040-7 (Version None)
Quarter: 2006Q2

REPORT INFORMATION
  Report Type: 
  Country: None (occurrence: None)
  Receive Date: 20060601
  Receipt Date: 20060214
  Transmission Date: 20061013
  Serious: No
  Sender: FDA-Public Use
  Company Number: US200602003047

PATIENT
  Age: 47 Year
  Sex: Female

DRUGS (3)
  1. CYMBALTA [Suspect]
     Indication: PANIC ATTACK
     Dosage: SEE IMAGE
     Dates: start: 20060101
  2. KLONOPIN [Concomitant]
  3. LORCET-HD [Concomitant]

REACTIONS (1)
  - ABNORMAL BEHAVIOUR [None]
